FAERS Safety Report 9517346 (Version 1)
Quarter: 2013Q3

REPORT INFORMATION
  Report Type: Spontaneous
  Country: None (occurrence: GB)
  Receive Date: 20130911
  Receipt Date: 20130911
  Transmission Date: 20140515
  Serious: Yes (Hospitalization)
  Sender: FDA-Public Use
  Company Number: GB-TAKEDA-2013TJP000289

PATIENT
  Sex: 0

DRUGS (6)
  1. LANSOPRAZOLE [Suspect]
     Indication: GASTROOESOPHAGEAL REFLUX DISEASE
     Dosage: 30 MG, QD
     Route: 048
     Dates: end: 20130611
  2. SPRYCEL [Suspect]
     Indication: CHRONIC MYELOID LEUKAEMIA
     Dosage: 100 MG, QD
     Route: 048
     Dates: start: 20130418, end: 20130420
  3. CITALOPRAM [Concomitant]
  4. METOCLOPRAMIDE [Concomitant]
  5. ACIDEX                             /01521901/ [Concomitant]
  6. IMATINIB MESILATE [Suspect]
     Indication: CHRONIC MYELOID LEUKAEMIA
     Dosage: 100 MG, BID
     Route: 048
     Dates: start: 20130606, end: 20130613

REACTIONS (5)
  - Glomerulonephritis [Recovering/Resolving]
  - Renal vasculitis [Unknown]
  - Chest pain [Unknown]
  - Rash [Unknown]
  - Headache [Unknown]
